FAERS Safety Report 18211259 (Version 1)
Quarter: 2020Q3

REPORT INFORMATION
  Report Type: Spontaneous
  Country: GB (occurrence: GB)
  Receive Date: 20200831
  Receipt Date: 20200831
  Transmission Date: 20201103
  Serious: Yes (Hospitalization, Other)
  Sender: FDA-Public Use
  Company Number: GB-AUROBINDO-AUR-APL-2020-045303

PATIENT
  Age: 57 Year
  Sex: Female
  Weight: 79.5 kg

DRUGS (22)
  1. PARACETAMOL [Suspect]
     Active Substance: ACETAMINOPHEN
     Indication: PAIN
     Dosage: UNK (500 MG TO 1 GRAM, QDS, PRN)
     Route: 048
     Dates: end: 20200628
  2. AMLODIPINE [Suspect]
     Active Substance: AMLODIPINE BESYLATE
     Indication: HYPERTENSION
     Dosage: 70 MILLIGRAM
     Route: 048
     Dates: start: 20200628, end: 20200628
  3. SALBUTAMOL [Concomitant]
     Active Substance: ALBUTEROL
     Indication: ASTHMA
     Dosage: UNK (1?2 PUFFS QDS/ PRN, INHALER)
     Route: 048
     Dates: end: 20200628
  4. NAPROXEN. [Suspect]
     Active Substance: NAPROXEN
     Indication: PAIN
     Dosage: 500 MILLIGRAM, TWO TIMES A DAY
     Route: 048
     Dates: end: 20200628
  5. CLOZARIL [Suspect]
     Active Substance: CLOZAPINE
     Dosage: 4.2 GRAM
     Route: 048
     Dates: start: 20200628, end: 20200628
  6. LANSOPRAZOLE. [Suspect]
     Active Substance: LANSOPRAZOLE
     Dosage: 15 MILLIGRAM, ONCE A DAY
     Route: 048
     Dates: end: 20200628
  7. MIRTAZAPINE. [Suspect]
     Active Substance: MIRTAZAPINE
     Indication: DEPRESSION
     Dosage: 315 MILLIGRAM
     Route: 048
     Dates: start: 20200628, end: 20200628
  8. BECLOMETASONE [Concomitant]
     Active Substance: BECLOMETHASONE DIPROPIONATE
     Indication: ASTHMA
  9. PARACETAMOL [Suspect]
     Active Substance: ACETAMINOPHEN
     Indication: SCIATICA
     Dosage: 15 GRAM
     Route: 048
     Dates: start: 20200628, end: 20200628
  10. MIRTAZAPINE. [Suspect]
     Active Substance: MIRTAZAPINE
     Dosage: 45 MILLIGRAM, ONCE A DAY
     Route: 048
     Dates: end: 20200628
  11. CLOZARIL [Suspect]
     Active Substance: CLOZAPINE
     Dosage: 600 MILLIGRAM, ONCE A DAY (300 MILLIGRAM, BID)
     Route: 048
     Dates: start: 20050118, end: 20200628
  12. BECLOMETASONE [Concomitant]
     Active Substance: BECLOMETHASONE DIPROPIONATE
     Indication: CHRONIC OBSTRUCTIVE PULMONARY DISEASE
     Dosage: UNK , ONCE A DAY (2 PUFFS, BID,)
     Route: 048
     Dates: end: 20200628
  13. NAPROXEN. [Suspect]
     Active Substance: NAPROXEN
     Indication: ARTHRITIS
     Dosage: 21 GRAM
     Route: 048
     Dates: start: 20200628, end: 20200628
  14. AMLODIPINE [Suspect]
     Active Substance: AMLODIPINE BESYLATE
     Dosage: 5 MILLIGRAM, ONCE A DAY
     Route: 048
     Dates: end: 20200628
  15. CLOZARIL [Suspect]
     Active Substance: CLOZAPINE
     Indication: SCHIZOPHRENIA
     Dosage: 400 MILLIGRAM, ONCE A DAY (200 MILLIGRAM, BID)
     Route: 048
     Dates: start: 2020
  16. LANSOPRAZOLE. [Suspect]
     Active Substance: LANSOPRAZOLE
     Indication: PROPHYLAXIS AGAINST GASTROINTESTINAL ULCER
     Dosage: 105 MILLIGRAM
     Route: 048
     Dates: start: 20200628, end: 20200628
  17. SALBUTAMOL [Concomitant]
     Active Substance: ALBUTEROL
     Indication: CHRONIC OBSTRUCTIVE PULMONARY DISEASE
  18. AQUADERM [Concomitant]
     Indication: DRY SKIN
     Dosage: UNK (ASD, ASD)
     Route: 061
     Dates: end: 20200628
  19. ACETYLCYSTEINE. [Concomitant]
     Active Substance: ACETYLCYSTEINE
     Indication: PRODUCT USED FOR UNKNOWN INDICATION
     Dosage: UNK
     Route: 065
  20. PARACETAMOL [Suspect]
     Active Substance: ACETAMINOPHEN
     Indication: ARTHRITIS
  21. NAPROXEN. [Suspect]
     Active Substance: NAPROXEN
     Indication: SCIATICA
  22. ADCAL D3 [Concomitant]
     Active Substance: CALCIUM CARBONATE\CHOLECALCIFEROL
     Indication: SUPPLEMENTATION THERAPY
     Dosage: 4 DOSAGE FORM, ONCE A DAY (2 DOSAGE FORM, BID, 750MG/100 UNITS)
     Route: 048
     Dates: end: 20200628

REACTIONS (3)
  - Haemorrhage [Unknown]
  - Overdose [Recovering/Resolving]
  - Sinus tachycardia [Unknown]

NARRATIVE: CASE EVENT DATE: 2020
